FAERS Safety Report 11128412 (Version 10)
Quarter: 2017Q1

REPORT INFORMATION
  Report Type: Report from Study
  Country: US (occurrence: US)
  Receive Date: 20150521
  Receipt Date: 20170324
  Transmission Date: 20170428
  Serious: Yes (Hospitalization, Other)
  Sender: FDA-Public Use
  Company Number: US-SA-2015SA005693

PATIENT
  Age: 54 Year
  Sex: Male

DRUGS (5)
  1. METFORMIN [Concomitant]
     Active Substance: METFORMIN HYDROCHLORIDE
  2. LANTUS [Concomitant]
     Active Substance: INSULIN GLARGINE
     Dosage: DOSE:46 UNIT(S)
  3. LEMTRADA [Suspect]
     Active Substance: ALEMTUZUMAB
     Indication: MULTIPLE SCLEROSIS RELAPSE
     Dosage: 5 VIALS, ANNUAL
     Route: 041
     Dates: start: 20150105, end: 20150109
  4. LEMTRADA [Suspect]
     Active Substance: ALEMTUZUMAB
     Indication: MULTIPLE SCLEROSIS RELAPSE
     Route: 041
     Dates: start: 20160111, end: 20160113
  5. INSULIN [Concomitant]
     Active Substance: INSULIN NOS

REACTIONS (60)
  - Diabetes mellitus inadequate control [Unknown]
  - Cerebral disorder [Unknown]
  - Diarrhoea [Not Recovered/Not Resolved]
  - Eye pain [Unknown]
  - Tongue blistering [Recovering/Resolving]
  - Oropharyngeal pain [Recovered/Resolved]
  - Influenza [Recovered/Resolved]
  - Blister [Unknown]
  - Mass [Recovering/Resolving]
  - Irritability [Unknown]
  - Exophthalmos [Unknown]
  - Joint swelling [Unknown]
  - Gait disturbance [Recovered/Resolved]
  - Dysphagia [Recovering/Resolving]
  - Hair disorder [Not Recovered/Not Resolved]
  - Increased appetite [Not Recovered/Not Resolved]
  - Diabetic ulcer [Recovered/Resolved]
  - Bone pain [Recovering/Resolving]
  - Nasopharyngitis [Recovered/Resolved]
  - Fall [Recovered/Resolved]
  - Ocular discomfort [Not Recovered/Not Resolved]
  - Weight increased [Not Recovered/Not Resolved]
  - Malaise [Not Recovered/Not Resolved]
  - Pruritus [Recovering/Resolving]
  - Fatigue [Not Recovered/Not Resolved]
  - Herpes zoster [Recovered/Resolved]
  - Ill-defined disorder [Not Recovered/Not Resolved]
  - Confusional state [Not Recovered/Not Resolved]
  - Malaise [Not Recovered/Not Resolved]
  - Paruresis [Unknown]
  - Feeling hot [Recovering/Resolving]
  - Rhinorrhoea [Recovered/Resolved]
  - Memory impairment [Not Recovered/Not Resolved]
  - Alopecia [Not Recovered/Not Resolved]
  - Insomnia [Unknown]
  - Cerebral haemorrhage [Recovered/Resolved]
  - Asthenia [Not Recovered/Not Resolved]
  - Cellulitis [Recovered/Resolved]
  - Speech disorder [Recovered/Resolved]
  - Nausea [Recovering/Resolving]
  - Neck pain [Not Recovered/Not Resolved]
  - Fall [Not Recovered/Not Resolved]
  - Abnormal behaviour [Recovered/Resolved]
  - Rotavirus infection [Not Recovered/Not Resolved]
  - Vomiting [Not Recovered/Not Resolved]
  - Staphylococcal infection [Recovered/Resolved]
  - Activities of daily living impaired [Unknown]
  - Injection site pain [Unknown]
  - Constipation [Not Recovered/Not Resolved]
  - Nuclear magnetic resonance imaging abnormal [Not Recovered/Not Resolved]
  - Halo vision [Not Recovered/Not Resolved]
  - Blood glucose increased [Recovered/Resolved]
  - Head injury [Recovered/Resolved]
  - Loss of consciousness [Recovered/Resolved]
  - Multiple sclerosis relapse [Recovered/Resolved]
  - Visual acuity reduced [Not Recovered/Not Resolved]
  - Goitre [Not Recovered/Not Resolved]
  - Blood pressure increased [Recovered/Resolved]
  - Feeling cold [Not Recovered/Not Resolved]
  - Headache [Recovering/Resolving]

NARRATIVE: CASE EVENT DATE: 2015
